FAERS Safety Report 9228908 (Version 1)
Quarter: 2013Q2

REPORT INFORMATION
  Report Type: Spontaneous
  Country: US (occurrence: US)
  Receive Date: 20130412
  Receipt Date: 20130412
  Transmission Date: 20140414
  Serious: No
  Sender: FDA-Public Use
  Company Number: US-ASTRAZENECA-2013SE20768

PATIENT
  Sex: Female

DRUGS (5)
  1. ARIMIDEX [Suspect]
     Indication: BREAST CANCER
     Route: 048
     Dates: start: 201205, end: 2012
  2. ARIMIDEX [Suspect]
     Indication: BREAST CANCER
     Route: 048
     Dates: start: 20121120, end: 201212
  3. TAMOXIFEN [Suspect]
     Indication: BREAST CANCER
     Route: 048
     Dates: start: 20120724
  4. TAMOXIFEN [Suspect]
     Indication: BREAST CANCER
     Route: 048
     Dates: start: 201301
  5. CEVALA [Concomitant]
     Indication: FIBROMYALGIA

REACTIONS (8)
  - Pain [Not Recovered/Not Resolved]
  - Gait disturbance [Unknown]
  - Dysstasia [Unknown]
  - Arthralgia [Unknown]
  - Arthritis [Not Recovered/Not Resolved]
  - Arthralgia [Recovered/Resolved]
  - Intentional drug misuse [Unknown]
  - Off label use [Unknown]
